FAERS Safety Report 13645518 (Version 2)
Quarter: 2021Q4

REPORT INFORMATION
  Report Type: Spontaneous
  Country: IT (occurrence: IT)
  Receive Date: 20170613
  Receipt Date: 20211102
  Transmission Date: 20220303
  Serious: Yes (Hospitalization, Disabling, Other)
  Sender: FDA-Public Use
  Company Number: PHHY2017IT085100

PATIENT
  Age: 28 Year
  Sex: Male

DRUGS (11)
  1. GILENYA [Suspect]
     Active Substance: FINGOLIMOD HYDROCHLORIDE
     Indication: Multiple sclerosis
     Dosage: UNK
     Route: 065
  2. GILENYA [Suspect]
     Active Substance: FINGOLIMOD HYDROCHLORIDE
     Dosage: UNK
     Route: 065
     Dates: start: 201709, end: 201804
  3. GILENYA [Suspect]
     Active Substance: FINGOLIMOD HYDROCHLORIDE
     Dosage: UNK
     Route: 065
  4. TYSABRI [Suspect]
     Active Substance: NATALIZUMAB
     Indication: Relapsing-remitting multiple sclerosis
     Dosage: 1 KG, Q4W
     Route: 065
     Dates: end: 20160615
  5. TYSABRI [Suspect]
     Active Substance: NATALIZUMAB
     Dosage: UNK
     Route: 065
     Dates: start: 20121122
  6. TYSABRI [Suspect]
     Active Substance: NATALIZUMAB
     Dosage: 1 KG, Q4W
     Route: 065
     Dates: start: 20120710
  7. TYSABRI [Suspect]
     Active Substance: NATALIZUMAB
     Dosage: 1 KG, Q4W
     Route: 065
     Dates: start: 20170328
  8. TYSABRI [Suspect]
     Active Substance: NATALIZUMAB
     Dosage: 300 MG
     Route: 065
     Dates: start: 2012
  9. TYSABRI [Suspect]
     Active Substance: NATALIZUMAB
     Dosage: 1 KG, Q4W
     Route: 065
     Dates: end: 20160328
  10. PREDNISONE [Concomitant]
     Active Substance: PREDNISONE
     Indication: Product used for unknown indication
     Dosage: 25 HALF A TABLET / DAILY IN THE MORNING FOR 7 DAYS
     Route: 050
  11. LEUCOVORIN CALCIUM [Concomitant]
     Active Substance: LEUCOVORIN CALCIUM
     Indication: Product used for unknown indication
     Dosage: UNK
     Route: 050

REACTIONS (3)
  - Autoimmune haemolytic anaemia [Recovered/Resolved with Sequelae]
  - Drug-induced liver injury [Unknown]
  - Relapsing-remitting multiple sclerosis [Unknown]

NARRATIVE: CASE EVENT DATE: 20120710
